FAERS Safety Report 25500814 (Version 1)
Quarter: 2025Q3

REPORT INFORMATION
  Report Type: Spontaneous
  Country: US (occurrence: US)
  Receive Date: 20250701
  Receipt Date: 20250701
  Transmission Date: 20251020
  Serious: No
  Sender: BRISTOL-MYERS SQUIBB COMPANY
  Company Number: US-BRISTOL-MYERS SQUIBB COMPANY-2025-093061

PATIENT
  Age: 63 Year
  Sex: Female

DRUGS (3)
  1. ZEPOSIA [Suspect]
     Active Substance: OZANIMOD HYDROCHLORIDE
     Indication: Multiple sclerosis
     Dosage: ZEPOSIA STARTER KIT
     Route: 048
     Dates: start: 202506
  2. BUDESONIDE [Suspect]
     Active Substance: BUDESONIDE
     Indication: Product used for unknown indication
     Dosage: TAKE 2 CAPSULES BY MOUTH FOR THE FIRST MONTH AND THEN TAKE ONCE DAILY FOR THE SECOND MONTH
     Route: 048
  3. BUDESONIDE [Suspect]
     Active Substance: BUDESONIDE
     Dosage: TAKE 2 CAPSULES BY MOUTH FOR THE FIRST MONTH AND THEN TAKE ONCE DAILY FOR THE SECOND MONTH
     Route: 048

REACTIONS (2)
  - Headache [Unknown]
  - Nasal congestion [Unknown]
